FAERS Safety Report 17077201 (Version 1)
Quarter: 2019Q4

REPORT INFORMATION
  Report Type: Report from Study
  Country: CA (occurrence: CA)
  Receive Date: 20191126
  Receipt Date: 20191126
  Transmission Date: 20200122
  Serious: Yes (Hospitalization, Other)
  Sender: FDA-Public Use
  Company Number: CA-GLAXOSMITHKLINE-CA2019AMR211447

PATIENT
  Sex: Female

DRUGS (1)
  1. MEPOLIZUMAB [Suspect]
     Active Substance: MEPOLIZUMAB
     Indication: ASTHMA
     Dosage: 100 MG, Z
     Dates: start: 20161207

REACTIONS (6)
  - Cardiac fibrillation [Unknown]
  - Hypopnoea [Unknown]
  - Cardiac arrest [Unknown]
  - Cardiac disorder [Unknown]
  - Loss of consciousness [Unknown]
  - Malaise [Unknown]
